FAERS Safety Report 24525841 (Version 10)
Quarter: 2025Q2

REPORT INFORMATION
  Report Type: Spontaneous
  Country: US (occurrence: US)
  Receive Date: 20241020
  Receipt Date: 20250427
  Transmission Date: 20250717
  Serious: Yes (Other)
  Sender: SANOFI AVENTIS
  Company Number: US-SA-2024SA296668

PATIENT
  Age: 26 Year
  Sex: Male

DRUGS (6)
  1. ALPROLIX [Suspect]
     Active Substance: EFTRENONACOG ALFA
     Indication: Haemarthrosis
     Dosage: 6000 IU, QW
     Route: 065
  2. ALPROLIX [Suspect]
     Active Substance: EFTRENONACOG ALFA
     Indication: Haemarthrosis
     Dosage: 6000 IU, QW
     Route: 065
  3. ALPROLIX [Suspect]
     Active Substance: EFTRENONACOG ALFA
     Indication: Prophylaxis
     Route: 042
  4. ALPROLIX [Suspect]
     Active Substance: EFTRENONACOG ALFA
     Indication: Prophylaxis
     Route: 042
  5. ALPROLIX [Suspect]
     Active Substance: EFTRENONACOG ALFA
     Route: 042
  6. ALPROLIX [Suspect]
     Active Substance: EFTRENONACOG ALFA
     Route: 042

REACTIONS (17)
  - Haemarthrosis [Unknown]
  - Condition aggravated [Unknown]
  - Fall [Unknown]
  - Peripheral swelling [Unknown]
  - Pain [Unknown]
  - Contusion [Unknown]
  - Erythema [Unknown]
  - Joint injury [Unknown]
  - Arthralgia [Unknown]
  - Eye contusion [Unknown]
  - Contusion [Unknown]
  - Pain [Unknown]
  - Contusion [Unknown]
  - Haemorrhage [Recovered/Resolved]
  - Skin abrasion [Unknown]
  - Skin laceration [Unknown]
  - Fall [Unknown]

NARRATIVE: CASE EVENT DATE: 20240923
